FAERS Safety Report 6055934-1 (Version None)
Quarter: 2009Q1

REPORT INFORMATION
  Report Type: 
  Country: None (occurrence: None)
  Receive Date: 20090128
  Receipt Date: 20090116
  Transmission Date: 20090719
  Serious: Yes (Life-Threatening, Hospitalization)
  Sender: FDA-Public Use
  Company Number: GB-WATSON-2009-00229

PATIENT
  Age: 14 Year
  Sex: Female
  Weight: 40 kg

DRUGS (3)
  1. FORTAMET [Suspect]
     Indication: DRUG USE FOR UNKNOWN INDICATION
     Dosage: MAXIMAL POSSIBLE INGESTED DOSE 126 X 500 MG (63 G)
     Route: 048
  2. ATENOLOL [Suspect]
     Indication: DRUG USE FOR UNKNOWN INDICATION
     Dosage: MAXIMAL POSSIBLE INGESTED DOSE 28 X 50 MG (1400 MG)
     Route: 048
  3. DICLOFENAC (WATSON LABORATORIES) [Suspect]
     Indication: DRUG USE FOR UNKNOWN INDICATION
     Dosage: MAXIMAL POSSIBLE INGESTED DOSE 14 X 75 MG (1050 MG)
     Route: 048

REACTIONS (6)
  - COMA [None]
  - CONVULSION [None]
  - HYPOGLYCAEMIA [None]
  - HYPOTENSION [None]
  - INTENTIONAL OVERDOSE [None]
  - LACTIC ACIDOSIS [None]
